FAERS Safety Report 10551093 (Version 3)
Quarter: 2014Q4

REPORT INFORMATION
  Report Type: Spontaneous
  Country: US (occurrence: None)
  Receive Date: 20141020
  Receipt Date: 20141118
  Transmission Date: 20150529
  Serious: Yes (Other)
  Sender: FDA-Public Use
  Company Number: AEGR000734

PATIENT
  Age: 49 Year
  Sex: Female
  Weight: 113.4 kg

DRUGS (27)
  1. DIOVAN [Concomitant]
     Active Substance: VALSARTAN
  2. SPIRONOLACTONE (SPIRONOLACTONE) [Concomitant]
     Active Substance: SPIRONOLACTONE
  3. ZANTAC [Concomitant]
     Active Substance: RANITIDINE HYDROCHLORIDE
  4. ZETIA [Concomitant]
     Active Substance: EZETIMIBE
  5. PROBIOTICS [Concomitant]
     Active Substance: PROBIOTICS NOS
  6. JUXTAPID [Suspect]
     Active Substance: LOMITAPIDE MESYLATE
     Indication: TYPE IIA HYPERLIPIDAEMIA
     Route: 048
     Dates: start: 201408, end: 2014
  7. CALCIUM (CALCIUM) [Concomitant]
     Active Substance: CALCIUM
  8. MULTIVITAMIN (VITAMINS NOS) [Concomitant]
     Active Substance: VITAMINS
  9. CRESTOR [Concomitant]
     Active Substance: ROSUVASTATIN CALCIUM
  10. MIRAPEX [Concomitant]
     Active Substance: PRAMIPEXOLE DIHYDROCHLORIDE
  11. NIASPAN (NICOTINIC ACID) [Concomitant]
  12. MIRALAX (MACROGOL) [Concomitant]
  13. TAMOXIFEN (TAMOXIFEN CITRATE0 [Concomitant]
  14. VITAMIN B-COMPLEX (VITAMIN B COMPLEX) [Concomitant]
  15. WELCHOL (COLESEVELAM HYDROCHLORIDE) (625 MILLIGRAM, TABLET) (COLESEVELAM HYDROCHLORIDE) [Concomitant]
     Active Substance: COLESEVELAM HYDROCHLORIDE
  16. OMEPRAZOLE (OMEPRAZOLE) [Concomitant]
     Active Substance: OMEPRAZOLE
  17. CARVEDILOL (CARVEDILOL) [Concomitant]
     Active Substance: CARVEDILOL
  18. FLEXERIL (CYCLOBENZAPINE HYDROCHLORIDE) [Concomitant]
  19. METFORMIN [Concomitant]
     Active Substance: METFORMIN HYDROCHLORIDE
  20. BENEFIBER (CYAMOPSIS TETRAGONOLOBA GUM) [Concomitant]
  21. AMLODIPINE [Concomitant]
     Active Substance: AMLODIPINE BESYLATE
  22. VITAMIN D3 (VITAMIN D3) [Concomitant]
  23. ZOFRAN (ONDANSETRON HYDOCHLORIDE) [Concomitant]
  24. METANX (CALCIUM MOFOLINATE, PYRIDOXINE HYDORCHLORIDE, VITAMIN B12 NOS) [Concomitant]
  25. GABAPENTIN (GABAPENTIN) [Concomitant]
     Active Substance: GABAPENTIN
  26. ASPIRIN (ACETYLASALICYLIC ACID) [Concomitant]
  27. PATANASE (OLOPATADINE HYDROCHLORIDE) [Concomitant]

REACTIONS (6)
  - Nausea [None]
  - Headache [None]
  - Weight decreased [None]
  - Fatigue [None]
  - Dizziness [None]
  - Pneumonia [None]

NARRATIVE: CASE EVENT DATE: 2014
